FAERS Safety Report 21255609 (Version 2)
Quarter: 2022Q4

REPORT INFORMATION
  Report Type: Spontaneous
  Country: US (occurrence: US)
  Receive Date: 20220825
  Receipt Date: 20221010
  Transmission Date: 20230113
  Serious: No
  Sender: FDA-Public Use
  Company Number: US-ALLERGAN-2227262US

PATIENT
  Age: 21 Year
  Sex: Female

DRUGS (1)
  1. LILETTA [Suspect]
     Active Substance: LEVONORGESTREL
     Indication: Contraception
     Dosage: 52 MG, SINGLE
     Route: 015
     Dates: start: 20220808, end: 20220808

REACTIONS (3)
  - Complication of device insertion [Unknown]
  - Device breakage [Unknown]
  - Uterine spasm [Unknown]

NARRATIVE: CASE EVENT DATE: 20220808
